FAERS Safety Report 6764266-5 (Version None)
Quarter: 2010Q2

REPORT INFORMATION
  Report Type: 
  Country: None (occurrence: None)
  Receive Date: 20100610
  Receipt Date: 20100429
  Transmission Date: 20101027
  Serious: Yes (Other)
  Sender: FDA-Public Use
  Company Number: US-BAXTER-2010BH003505

PATIENT
  Age: 58 Year
  Sex: Male
  Weight: 79 kg

DRUGS (35)
  1. HEPARIN SODIUM INJECTION [Suspect]
     Indication: MITRAL VALVE REPAIR
     Route: 042
     Dates: start: 20080409, end: 20080409
  2. HEPARIN SODIUM INJECTION [Suspect]
     Indication: DRUG USE FOR UNKNOWN INDICATION
     Route: 042
     Dates: start: 20080409, end: 20080409
  3. HEPARIN SODIUM INJECTION [Suspect]
     Route: 058
     Dates: start: 20080409, end: 20080415
  4. HEPARIN SODIUM INJECTION [Suspect]
     Route: 058
     Dates: start: 20080409, end: 20080415
  5. HEPARIN SODIUM INJECTION [Suspect]
     Route: 042
     Dates: start: 20080522, end: 20080522
  6. HEPARIN SODIUM INJECTION [Suspect]
     Route: 042
     Dates: start: 20080522, end: 20080522
  7. HEPARIN SODIUM INJECTION [Suspect]
     Route: 042
     Dates: start: 20080518, end: 20080518
  8. HEPARIN SODIUM INJECTION [Suspect]
     Route: 042
     Dates: start: 20080518, end: 20080518
  9. HEPARIN SODIUM INJECTION [Suspect]
     Route: 042
     Dates: start: 20080519, end: 20080519
  10. HEPARIN SODIUM INJECTION [Suspect]
     Route: 042
     Dates: start: 20080519, end: 20080519
  11. HEPARIN SODIUM INJECTION [Suspect]
     Route: 042
     Dates: start: 20080522, end: 20080522
  12. HEPARIN SODIUM INJECTION [Suspect]
     Route: 042
     Dates: start: 20080522, end: 20080522
  13. OMEPRAZOLE [Concomitant]
     Indication: DRUG USE FOR UNKNOWN INDICATION
     Route: 065
  14. EFFEXOR XR [Concomitant]
     Indication: DRUG USE FOR UNKNOWN INDICATION
     Route: 065
  15. GABAPENTIN [Concomitant]
     Indication: DRUG USE FOR UNKNOWN INDICATION
     Route: 065
  16. TYLENOL W/ CODEINE NO. 3 [Concomitant]
     Indication: DRUG USE FOR UNKNOWN INDICATION
     Route: 065
  17. ZITHROMAX [Concomitant]
     Indication: DRUG USE FOR UNKNOWN INDICATION
     Route: 065
  18. HYDROCODONE [Concomitant]
     Indication: DRUG USE FOR UNKNOWN INDICATION
     Route: 065
  19. COMBIVENT                               /GFR/ [Concomitant]
     Indication: DRUG USE FOR UNKNOWN INDICATION
     Route: 065
  20. FUROSEMIDE [Concomitant]
     Indication: DRUG USE FOR UNKNOWN INDICATION
     Route: 065
  21. HYDROXYCHLOROQUINE SULFATE [Concomitant]
     Indication: DRUG USE FOR UNKNOWN INDICATION
     Route: 065
  22. CARTIA XT [Concomitant]
     Indication: DRUG USE FOR UNKNOWN INDICATION
     Route: 065
  23. CIPRO [Concomitant]
     Indication: DRUG USE FOR UNKNOWN INDICATION
     Route: 065
  24. VALSARTAN [Concomitant]
     Indication: DRUG USE FOR UNKNOWN INDICATION
     Route: 065
  25. FOLIC ACID [Concomitant]
     Indication: DRUG USE FOR UNKNOWN INDICATION
     Route: 065
  26. 5% DEXTROSE INJECTION [Concomitant]
     Indication: DRUG USE FOR UNKNOWN INDICATION
     Route: 065
  27. AMIODARONE HYDROCHLORIDE [Concomitant]
     Indication: DRUG USE FOR UNKNOWN INDICATION
     Route: 065
  28. CEFAZOLIN [Concomitant]
     Indication: DRUG USE FOR UNKNOWN INDICATION
     Route: 065
  29. ALBUTEROL [Concomitant]
     Indication: DRUG USE FOR UNKNOWN INDICATION
     Route: 065
  30. WARFARIN [Concomitant]
     Indication: DRUG USE FOR UNKNOWN INDICATION
     Route: 065
  31. DOCUSATE SODIUM [Concomitant]
     Indication: DRUG USE FOR UNKNOWN INDICATION
     Route: 065
  32. FERROUS GLUCONATE [Concomitant]
     Indication: DRUG USE FOR UNKNOWN INDICATION
     Route: 065
  33. MAGNESIUM SULFATE [Concomitant]
     Indication: DRUG USE FOR UNKNOWN INDICATION
     Route: 065
  34. PERCOCET [Concomitant]
     Indication: DRUG USE FOR UNKNOWN INDICATION
     Route: 065
  35. POTASSIUM [Concomitant]
     Indication: DRUG USE FOR UNKNOWN INDICATION
     Route: 065

REACTIONS (9)
  - BLOOD PRESSURE DECREASED [None]
  - COAGULOPATHY [None]
  - FATIGUE [None]
  - HEPARIN-INDUCED THROMBOCYTOPENIA [None]
  - HYPOKINESIA [None]
  - HYPOTENSION [None]
  - IMPAIRED WORK ABILITY [None]
  - MULTI-ORGAN FAILURE [None]
  - NAUSEA [None]
